FAERS Safety Report 9529837 (Version 2)
Quarter: 2013Q4

REPORT INFORMATION
  Report Type: Spontaneous
  Country: GB (occurrence: GB)
  Receive Date: 20130917
  Receipt Date: 20131029
  Transmission Date: 20140711
  Serious: Yes (Other)
  Sender: FDA-Public Use
  Company Number: PHFR2013GB005261

PATIENT
  Age: 36 Year
  Sex: Male

DRUGS (3)
  1. CLOZARIL [Suspect]
     Indication: SCHIZOPHRENIA
     Dosage: 650 MG
     Route: 048
     Dates: start: 2013
  2. CLOZARIL [Suspect]
     Dosage: DOSE REDUCED
  3. AMISULPRIDE [Concomitant]
     Dosage: 800 MG DAILY
     Route: 048
     Dates: start: 201301

REACTIONS (1)
  - Blood prolactin increased [Unknown]
